FAERS Safety Report 4791151-0 (Version None)
Quarter: 2005Q4

REPORT INFORMATION
  Report Type: 
  Country: None (occurrence: None)
  Receive Date: 20051005
  Receipt Date: 20050927
  Transmission Date: 20060501
  Serious: Yes (Hospitalization)
  Sender: FDA-Public Use
  Company Number: FRWYE970412SEP05

PATIENT
  Age: 20 Year
  Sex: Female

DRUGS (1)
  1. ADEPAL     (LEVONORGESTREL/ETHINYL ESTRADIOL) [Suspect]
     Indication: CONTRACEPTION
     Dosage: 1 TABLET 1X PER 1 DAY ORAL
     Route: 048
     Dates: start: 20040201, end: 20050810

REACTIONS (1)
  - SUBCLAVIAN VEIN THROMBOSIS [None]
